FAERS Safety Report 10994539 (Version 1)
Quarter: 2015Q2

REPORT INFORMATION
  Report Type: Spontaneous
  Country: IT (occurrence: IT)
  Receive Date: 20150407
  Receipt Date: 20150407
  Transmission Date: 20150821
  Serious: Yes (Other)
  Sender: FDA-Public Use
  Company Number: IT-PFIZER INC-2015111583

PATIENT
  Age: 1 Year
  Sex: Male

DRUGS (2)
  1. BENEFIX [Suspect]
     Active Substance: COAGULATION FACTOR IX RECOMBINANT HUMAN\ISOPROPYL ALCOHOL
     Indication: FACTOR IX DEFICIENCY
     Dosage: ON DEMAND
  2. BENEFIX [Suspect]
     Active Substance: COAGULATION FACTOR IX RECOMBINANT HUMAN\ISOPROPYL ALCOHOL
     Dosage: 150 IU/KG, DAILY

REACTIONS (11)
  - Respiratory disorder [Recovered/Resolved]
  - Pallor [Recovered/Resolved]
  - Haemorrhage [Unknown]
  - Hyperaemia [Recovered/Resolved]
  - Hypersensitivity [Recovered/Resolved]
  - Agitation [Recovered/Resolved]
  - Syncope [Recovered/Resolved]
  - Factor IX inhibition [Recovering/Resolving]
  - Hyperhidrosis [Recovered/Resolved]
  - Cyanosis [Recovered/Resolved]
  - Cough [Recovered/Resolved]
